FAERS Safety Report 23030407 (Version 1)
Quarter: 2023Q4

REPORT INFORMATION
  Report Type: Report from Study
  Country: JP (occurrence: JP)
  Receive Date: 20231005
  Receipt Date: 20231005
  Transmission Date: 20240110
  Serious: Yes (Other)
  Sender: FDA-Public Use
  Company Number: JP-TAKEDA-2023TUS095252

PATIENT
  Age: 9 Year
  Sex: Male

DRUGS (4)
  1. LISDEXAMFETAMINE DIMESYLATE [Suspect]
     Active Substance: LISDEXAMFETAMINE DIMESYLATE
     Indication: Attention deficit hyperactivity disorder
     Dosage: 20 MILLIGRAM, QD
     Route: 048
     Dates: start: 20230309, end: 20230531
  2. RISPERIDONE [Concomitant]
     Active Substance: RISPERIDONE
     Dosage: 1.4 MILLIGRAM, QD
     Route: 065
     Dates: end: 20230412
  3. RISPERIDONE [Concomitant]
     Active Substance: RISPERIDONE
     Dosage: 1.8 MILLIGRAM, QD
     Route: 065
     Dates: start: 20230413
  4. INTUNIV [Concomitant]
     Active Substance: GUANFACINE HYDROCHLORIDE
     Indication: Attention deficit hyperactivity disorder
     Dosage: 1.5 MILLIGRAM, QD
     Route: 065

REACTIONS (1)
  - Autism spectrum disorder [Recovering/Resolving]

NARRATIVE: CASE EVENT DATE: 20230401
